FAERS Safety Report 17089226 (Version 2)
Quarter: 2019Q4

REPORT INFORMATION
  Report Type: Spontaneous
  Country: US (occurrence: US)
  Receive Date: 20191128
  Receipt Date: 20191206
  Transmission Date: 20200122
  Serious: Yes (Hospitalization, Other)
  Sender: FDA-Public Use
  Company Number: US-CELGENEUS-USA-20191008302

PATIENT
  Age: 43 Year
  Sex: Male

DRUGS (1)
  1. OTEZLA [Suspect]
     Active Substance: APREMILAST
     Indication: PRODUCT USED FOR UNKNOWN INDICATION
     Dosage: 60 MILLIGRAM
     Route: 048
     Dates: start: 20180127

REACTIONS (2)
  - Product dose omission [Recovered/Resolved]
  - Cholelithiasis [Recovered/Resolved]

NARRATIVE: CASE EVENT DATE: 20191015
